FAERS Safety Report 17202866 (Version 1)
Quarter: 2019Q4

REPORT INFORMATION
  Report Type: Spontaneous
  Country: US (occurrence: US)
  Receive Date: 20191226
  Receipt Date: 20191226
  Transmission Date: 20200122
  Serious: No
  Sender: FDA-Public Use
  Company Number: US-CELGENEUS-USA-20191207980

PATIENT
  Age: 43 Year
  Sex: Female

DRUGS (1)
  1. OTEZLA [Suspect]
     Active Substance: APREMILAST
     Indication: PRODUCT USED FOR UNKNOWN INDICATION
     Dosage: 30 MILLIGRAM
     Route: 048
     Dates: start: 20191219

REACTIONS (4)
  - Emotional disorder [Unknown]
  - Anger [Unknown]
  - Herpes virus infection [Unknown]
  - Headache [Unknown]

NARRATIVE: CASE EVENT DATE: 20191219
